FAERS Safety Report 17298641 (Version 3)
Quarter: 2020Q1

REPORT INFORMATION
  Report Type: Spontaneous
  Country: US (occurrence: US)
  Receive Date: 20200121
  Receipt Date: 20200303
  Transmission Date: 20200409
  Serious: Yes (Other)
  Sender: FDA-Public Use
  Company Number: NVSC2020US014903

PATIENT
  Sex: Male
  Weight: 144 kg

DRUGS (1)
  1. KYMRIAH [Suspect]
     Active Substance: TISAGENLECLEUCEL
     Indication: ACUTE LYMPHOCYTIC LEUKAEMIA
     Dosage: 15 ML, ONCE/SINGLE
     Route: 065
     Dates: start: 20191205, end: 20191205

REACTIONS (1)
  - Drug ineffective [Unknown]
